FAERS Safety Report 11747686 (Version 1)
Quarter: 2015Q4

REPORT INFORMATION
  Report Type: Spontaneous
  Country: US (occurrence: US)
  Receive Date: 20151117
  Receipt Date: 20151117
  Transmission Date: 20160304
  Serious: Yes (Death)
  Sender: FDA-Public Use
  Company Number: PHHY2015US146548

PATIENT
  Age: 28 Week
  Sex: Female

DRUGS (10)
  1. HYDROCORTISONE. [Suspect]
     Active Substance: HYDROCORTISONE
     Indication: URINE OUTPUT DECREASED
     Dosage: 0.025 MG/KG, Q6H
     Route: 042
  2. ATROPINE. [Concomitant]
     Active Substance: ATROPINE
     Indication: PRODUCT USED FOR UNKNOWN INDICATION
     Dosage: 0.02 MG/KG, UNK
     Route: 042
  3. AMPICILLIN [Concomitant]
     Active Substance: AMPICILLIN
     Indication: SEPSIS
     Dosage: 100 MG/KG, Q12H
     Route: 042
  4. BUMEX [Concomitant]
     Active Substance: BUMETANIDE
     Indication: URINE OUTPUT DECREASED
     Dosage: 0.01 MG/KG, QD
     Route: 042
  5. VECURONIUM BROMIDE. [Suspect]
     Active Substance: VECURONIUM BROMIDE
     Indication: AGITATION
     Dosage: 0.1 MG/KG, QH
     Route: 041
  6. VECURONIUM BROMIDE. [Suspect]
     Active Substance: VECURONIUM BROMIDE
     Indication: GASTROINTESTINAL ANASTOMOTIC LEAK
  7. NEOSTIGMINE [Concomitant]
     Active Substance: NEOSTIGMINE
     Indication: PRODUCT USED FOR UNKNOWN INDICATION
     Dosage: 0.05 MG/KG, UNK
     Route: 042
  8. GENTAMICIN. [Suspect]
     Active Substance: GENTAMICIN
     Indication: SEPSIS
     Dosage: 5 MG/KG, Q48H
     Route: 042
  9. DOPAMINE [Concomitant]
     Active Substance: DOPAMINE\DOPAMINE HYDROCHLORIDE
     Indication: URINE OUTPUT DECREASED
     Dosage: 5 UG/KG, UNK
     Route: 065
  10. METOLAZON [Concomitant]
     Active Substance: METOLAZONE
     Indication: URINE OUTPUT DECREASED
     Dosage: 0.4 MG/KG, QD
     Route: 065

REACTIONS (3)
  - Multi-organ failure [Fatal]
  - Acute kidney injury [Fatal]
  - Neuromuscular blockade [Fatal]
